FAERS Safety Report 18937152 (Version 1)
Quarter: 2021Q1

REPORT INFORMATION
  Report Type: Report from Study
  Country: US (occurrence: US)
  Receive Date: 20210224
  Receipt Date: 20210224
  Transmission Date: 20210420
  Serious: Yes (Other)
  Sender: FDA-Public Use
  Company Number: US-BAYER-2020-170738

PATIENT
  Age: 73 Year
  Sex: Male

DRUGS (6)
  1. VITRAKVI [Suspect]
     Active Substance: LAROTRECTINIB
     Indication: NEOPLASM
     Dosage: UNK
  2. LISINOPRIL. [Concomitant]
     Active Substance: LISINOPRIL
  3. ZETIA [Concomitant]
     Active Substance: EZETIMIBE
  4. VITRAKVI [Suspect]
     Active Substance: LAROTRECTINIB
     Indication: NEOPLASM
     Dosage: 100 MG, BID
  5. LEVOTHYROXINE SODIUM. [Concomitant]
     Active Substance: LEVOTHYROXINE SODIUM
  6. CABERGOLINE. [Concomitant]
     Active Substance: CABERGOLINE

REACTIONS (2)
  - Surgery [None]
  - Adverse drug reaction [Recovering/Resolving]
